FAERS Safety Report 4274002-2 (Version None)
Quarter: 2004Q1

REPORT INFORMATION
  Report Type: 
  Country: None (occurrence: None)
  Receive Date: 20040115
  Receipt Date: 20040107
  Transmission Date: 20041129
  Serious: No
  Sender: FDA-Public Use
  Company Number: 2004UW00224

PATIENT
  Age: 6 Month

DRUGS (1)
  1. DIPRIVAN [Suspect]
     Indication: INDUCTION OF ANAESTHESIA

REACTIONS (2)
  - BRADYCARDIA [None]
  - METABOLIC ACIDOSIS [None]
